FAERS Safety Report 5857768-7 (Version None)
Quarter: 2008Q3

REPORT INFORMATION
  Report Type: 
  Country: None (occurrence: None)
  Receive Date: 20080822
  Receipt Date: 20080813
  Transmission Date: 20090109
  Serious: Yes (Congenital Anomaly)
  Sender: FDA-Public Use
  Company Number: GXKR2008DE07566

PATIENT
  Sex: Female

DRUGS (2)
  1. VENLAFAXINE HCL [Suspect]
     Dosage: 300 MG, QD, TRANSPLACENTAL
     Route: 064
  2. TRAZODONE HCL [Concomitant]

REACTIONS (3)
  - AGITATION [None]
  - MICROCEPHALY [None]
  - TREMOR [None]
